FAERS Safety Report 9976447 (Version 1)
Quarter: 2014Q1

REPORT INFORMATION
  Report Type: Report from Study
  Country: US (occurrence: US)
  Receive Date: 20140306
  Receipt Date: 20140306
  Transmission Date: 20141002
  Serious: No
  Sender: FDA-Public Use
  Company Number: US-ABBVIE-13P-163-1166693-00

PATIENT
  Sex: Female
  Weight: 68.1 kg

DRUGS (5)
  1. HUMIRA [Suspect]
     Indication: CROHN^S DISEASE
     Dates: start: 2012
  2. AZATHIOPRINE [Concomitant]
     Indication: CROHN^S DISEASE
  3. JUNEL [Concomitant]
     Indication: CONTRACEPTION
  4. FLUOXETINE [Concomitant]
     Indication: DEPRESSION
  5. FLUOXETINE [Concomitant]
     Indication: ANXIETY

REACTIONS (2)
  - Injection site bruising [Not Recovered/Not Resolved]
  - Injection site pain [Not Recovered/Not Resolved]
